FAERS Safety Report 11149492 (Version 2)
Quarter: 2015Q2

REPORT INFORMATION
  Report Type: Spontaneous
  Country: SA (occurrence: SA)
  Receive Date: 20150529
  Receipt Date: 20150616
  Transmission Date: 20150821
  Serious: Yes (Death, Hospitalization, Other)
  Sender: FDA-Public Use
  Company Number: SA-PFIZER INC-2015178423

PATIENT
  Age: 19 Year
  Sex: Male

DRUGS (1)
  1. XANAX [Suspect]
     Active Substance: ALPRAZOLAM
     Indication: INSOMNIA
     Dosage: UNK

REACTIONS (12)
  - Brain death [Fatal]
  - Liver injury [Unknown]
  - Septic shock [Unknown]
  - Overdose [Fatal]
  - Coma [Unknown]
  - Acute kidney injury [Unknown]
  - Generalised tonic-clonic seizure [Unknown]
  - Toxic leukoencephalopathy [Fatal]
  - Pneumonia aspiration [Unknown]
  - Respiratory failure [Unknown]
  - Haematemesis [Unknown]
  - Multi-organ failure [Unknown]
